FAERS Safety Report 7643693-8 (Version None)
Quarter: 2011Q3

REPORT INFORMATION
  Report Type: 
  Country: None (occurrence: None)
  Receive Date: 20110729
  Receipt Date: 20110720
  Transmission Date: 20111222
  Serious: Yes (Hospitalization, Other)
  Sender: FDA-Public Use
  Company Number: PHFR2011GB02620

PATIENT
  Sex: Male
  Weight: 114.3 kg

DRUGS (5)
  1. CITALOPRAM HYDROBROMIDE [Concomitant]
     Indication: DEPRESSION
     Dosage: 40 MG/DAY
     Route: 048
     Dates: start: 20040101
  2. CLOZAPINE [Suspect]
     Indication: SCHIZOPHRENIA
     Dosage: 100 MG, BID
     Route: 048
     Dates: start: 20110321, end: 20110417
  3. LEVOTHYROXINE SODIUM [Concomitant]
     Indication: HYPOTHYROIDISM
     Dosage: 75 MG/DAY
     Route: 048
     Dates: start: 20070101
  4. VALPROATE SODIUM [Concomitant]
     Indication: MENTAL DISORDER
     Dosage: 200 MG/DAY
     Route: 048
     Dates: start: 20080101
  5. RAMIPRIL [Concomitant]
     Indication: BLOOD PRESSURE INCREASED
     Dosage: 2.5 MG/DAY
     Route: 048
     Dates: start: 20110414

REACTIONS (7)
  - INFLUENZA LIKE ILLNESS [None]
  - MYOCARDITIS [None]
  - TROPONIN INCREASED [None]
  - ABDOMINAL PAIN [None]
  - SINUS TACHYCARDIA [None]
  - CHEST PAIN [None]
  - BODY TEMPERATURE INCREASED [None]
